FAERS Safety Report 9587779 (Version 1)
Quarter: 2013Q4

REPORT INFORMATION
  Report Type: Spontaneous
  Country: GB (occurrence: GB)
  Receive Date: 20131003
  Receipt Date: 20131003
  Transmission Date: 20140711
  Serious: Yes (Other)
  Sender: FDA-Public Use
  Company Number: GB-B.I. PHARMACEUTICALS,INC./RIDGEFIELD-2013-BI-31040YA

PATIENT
  Age: 83 Year
  Sex: Male

DRUGS (12)
  1. TAMSULOSINA [Suspect]
     Route: 065
  2. ALFUZOSIN [Concomitant]
  3. AMLODIPINE BESILATE [Concomitant]
  4. ASPIRIN (ACETYLSALICYLIC ACID) [Concomitant]
  5. ATORVASTATIN (ATORVASTATIN) [Concomitant]
  6. BRIMONIDINE (BRIMONIDINE) [Concomitant]
  7. BRINZOLAMIDE (BRINZOLAMIDE) [Concomitant]
  8. MAXITROL (DEXAMETHASONE, NEOMYCIN SULFATE, POLYMYXIN B SULFATE) [Concomitant]
  9. PARACETAMOL [Concomitant]
  10. SALIVIX (CALCIUM LACTATE, MALIC ACID, SODIUM PHOSPHATE) [Concomitant]
  11. TRAMADOL [Concomitant]
  12. TRAVOPROST [Concomitant]

REACTIONS (1)
  - Hypersensitivity [Not Recovered/Not Resolved]
